FAERS Safety Report 6573547-X (Version None)
Quarter: 2010Q1

REPORT INFORMATION
  Report Type: 
  Country: None (occurrence: None)
  Receive Date: 20100208
  Receipt Date: 20090727
  Transmission Date: 20100710
  Serious: No
  Sender: FDA-Public Use
  Company Number: US-ABBOTT-09P-163-0599732-00

PATIENT
  Sex: Female
  Weight: 42.222 kg

DRUGS (5)
  1. HUMIRA [Suspect]
     Indication: CROHN'S DISEASE
     Dates: start: 20081001, end: 20090701
  2. ZOLOFT [Concomitant]
     Indication: DEPRESSION
  3. ASACOL [Concomitant]
     Indication: CROHN'S DISEASE
  4. FOSAMAX [Concomitant]
     Indication: OSTEOPENIA
  5. FOSAMAX [Concomitant]
     Indication: OSTEOPOROSIS

REACTIONS (3)
  - RASH [None]
  - RASH GENERALISED [None]
  - SEBORRHOEIC DERMATITIS [None]
